FAERS Safety Report 12841884 (Version 1)
Quarter: 2016Q4

REPORT INFORMATION
  Report Type: Report from Study
  Country: US (occurrence: US)
  Receive Date: 20161012
  Receipt Date: 20161012
  Transmission Date: 20170207
  Serious: Yes (Other)
  Sender: FDA-Public Use
  Company Number: US-AMGEN-USASL2016140228

PATIENT
  Age: 45 Year
  Sex: Male

DRUGS (2)
  1. ENBREL [Suspect]
     Active Substance: ETANERCEPT
     Indication: PSORIASIS
     Dosage: 50 MG, EVERY THREE DAYS
     Route: 065
  2. ENBREL [Suspect]
     Active Substance: ETANERCEPT
     Dosage: 50 MG, EVERY FIVE DAYS
     Route: 065

REACTIONS (6)
  - Nasopharyngitis [Unknown]
  - Off label use [Unknown]
  - Eye swelling [Recovering/Resolving]
  - Tuberculosis [Unknown]
  - Psoriasis [Unknown]
  - Otorrhoea [Unknown]

NARRATIVE: CASE EVENT DATE: 2016
